FAERS Safety Report 8255303-X (Version None)
Quarter: 2012Q2

REPORT INFORMATION
  Report Type: 
  Country: None (occurrence: None)
  Receive Date: 20120403
  Receipt Date: 20120323
  Transmission Date: 20120825
  Serious: Yes (Other)
  Sender: FDA-Public Use
  Company Number: JP-BRISTOL-MYERS SQUIBB COMPANY-16490997

PATIENT
  Age: 41 Year
  Sex: Male
  Weight: 74 kg

DRUGS (5)
  1. SEROQUEL [Concomitant]
     Dates: start: 20111229
  2. LONASEN [Concomitant]
     Dates: start: 20111229, end: 20120111
  3. VALERIN [Concomitant]
     Dates: start: 20111229
  4. ABILIFY [Suspect]
     Indication: SCHIZOPHRENIA
     Dosage: 12MG FROM 7JAN2012 TO 11JAN12, 12JAN12-20JAN12-24MG
     Route: 048
     Dates: start: 20120107, end: 20120120
  5. MAGMITT [Concomitant]
     Dosage: TABS
     Dates: start: 20111229

REACTIONS (2)
  - HALLUCINATION [None]
  - DELUSION [None]
